FAERS Safety Report 9133959 (Version 3)
Quarter: 2013Q2

REPORT INFORMATION
  Report Type: Spontaneous
  Country: US (occurrence: US)
  Receive Date: 20130304
  Receipt Date: 20130418
  Transmission Date: 20140414
  Serious: Yes (Other)
  Sender: FDA-Public Use
  Company Number: US-009507513-1302USA013214

PATIENT
  Age: 73 Year
  Sex: Female

DRUGS (2)
  1. EMEND [Suspect]
     Dosage: UNK
     Route: 048
  2. CISPLATIN [Suspect]
     Dosage: UNK

REACTIONS (3)
  - Renal failure acute [Recovering/Resolving]
  - Dehydration [Recovering/Resolving]
  - Inappropriate schedule of drug administration [Unknown]
